FAERS Safety Report 7816048-0 (Version None)
Quarter: 2011Q4

REPORT INFORMATION
  Report Type: 
  Country: None (occurrence: None)
  Receive Date: 20111015
  Receipt Date: 20111005
  Transmission Date: 20120403
  Serious: Yes (Hospitalization)
  Sender: FDA-Public Use
  Company Number: JP-ASTRAZENECA-2011SE60155

PATIENT
  Age: 53 Year
  Sex: Female

DRUGS (2)
  1. RADIOTHERAPY [Concomitant]
     Dates: start: 20100601
  2. ARIMIDEX [Suspect]
     Indication: BREAST CANCER
     Route: 048
     Dates: start: 20100601

REACTIONS (1)
  - PULMONARY ARTERY THROMBOSIS [None]
